FAERS Safety Report 4814920-7 (Version None)
Quarter: 2005Q4

REPORT INFORMATION
  Report Type: 
  Country: None (occurrence: None)
  Receive Date: 20051028
  Receipt Date: 20051017
  Transmission Date: 20060501
  Serious: Yes (Hospitalization)
  Sender: FDA-Public Use
  Company Number: BR-BRISTOL-MYERS SQUIBB COMPANY-13150784

PATIENT
  Age: 81 Year
  Sex: Male
  Weight: 70 kg

DRUGS (7)
  1. REYATAZ [Suspect]
     Indication: HIV INFECTION
     Route: 048
     Dates: start: 20050516
  2. STAVUDINE [Concomitant]
  3. ZIDOVUDINE [Concomitant]
  4. LAMIVUDINE [Concomitant]
  5. SERTRALINE HCL [Concomitant]
  6. LEUCOVORIN CALCIUM [Concomitant]
  7. LEVOTHYROXINE [Concomitant]

REACTIONS (4)
  - ANAEMIA [None]
  - BLOOD BILIRUBIN UNCONJUGATED INCREASED [None]
  - JAUNDICE [None]
  - URINARY TRACT INFECTION [None]
